FAERS Safety Report 7962147-2 (Version None)
Quarter: 2011Q4

REPORT INFORMATION
  Report Type: 
  Country: None (occurrence: None)
  Receive Date: 20111207
  Receipt Date: 20111129
  Transmission Date: 20120403
  Serious: Yes (Hospitalization)
  Sender: FDA-Public Use
  Company Number: IT-JNJFOC-20111112384

PATIENT
  Age: 76 Year
  Sex: Female

DRUGS (10)
  1. EPIVIR [Concomitant]
     Indication: ASYMPTOMATIC HIV INFECTION
     Route: 065
     Dates: start: 20000101
  2. PLETAL [Concomitant]
     Indication: PRODUCT USED FOR UNKNOWN INDICATION
     Route: 065
  3. PORTOLAC [Concomitant]
     Indication: PRODUCT USED FOR UNKNOWN INDICATION
     Route: 065
  4. LEVOFLOXACIN [Suspect]
     Indication: URINARY TRACT INFECTION
     Route: 030
     Dates: start: 20111120, end: 20111123
  5. ASPIRIN [Concomitant]
     Indication: PRODUCT USED FOR UNKNOWN INDICATION
     Route: 065
  6. VIDEX [Concomitant]
     Indication: ASYMPTOMATIC HIV INFECTION
     Route: 065
     Dates: start: 20000101
  7. KANRENOL [Concomitant]
     Indication: PRODUCT USED FOR UNKNOWN INDICATION
     Route: 065
  8. LASIX [Concomitant]
     Indication: PRODUCT USED FOR UNKNOWN INDICATION
     Route: 065
  9. VIRAMUNE [Concomitant]
     Indication: ASYMPTOMATIC HIV INFECTION
     Route: 065
     Dates: start: 20000101
  10. RABEPRAZOLE SODIUM [Concomitant]
     Indication: PRODUCT USED FOR UNKNOWN INDICATION
     Route: 065

REACTIONS (4)
  - MUSCULOSKELETAL STIFFNESS [None]
  - MASKED FACIES [None]
  - CONVULSION [None]
  - LOSS OF CONSCIOUSNESS [None]
